FAERS Safety Report 6817312-4 (Version None)
Quarter: 2010Q3

REPORT INFORMATION
  Report Type: 
  Country: None (occurrence: None)
  Receive Date: 20100706
  Receipt Date: 20100624
  Transmission Date: 20110219
  Serious: Yes (Hospitalization, Other)
  Sender: FDA-Public Use
  Company Number: US-BAYER-201017187BCC

PATIENT
  Age: 61 Year
  Sex: Male

DRUGS (12)
  1. ASPIRIN [Suspect]
     Indication: PRODUCT USED FOR UNKNOWN INDICATION
     Route: 065
     Dates: end: 20100607
  2. ASPIRIN [Suspect]
     Route: 065
     Dates: start: 20100607
  3. PLAVIX [Suspect]
     Indication: MYOCARDIAL INFARCTION
     Route: 048
     Dates: start: 20100607, end: 20100607
  4. PLAVIX [Suspect]
     Route: 048
     Dates: start: 20100608, end: 20100610
  5. PLAVIX [Suspect]
     Route: 048
     Dates: start: 20100610
  6. REOPRO [Suspect]
     Indication: PRODUCT USED FOR UNKNOWN INDICATION
     Route: 042
     Dates: start: 20100607
  7. HEPARIN [Suspect]
     Indication: PRODUCT USED FOR UNKNOWN INDICATION
     Route: 042
  8. ZOCOR [Suspect]
     Indication: PRODUCT USED FOR UNKNOWN INDICATION
     Route: 048
     Dates: start: 20100601, end: 20100601
  9. LISINOPRIL [Concomitant]
     Route: 065
  10. GLIPIZIDE [Concomitant]
     Route: 065
  11. PEPCID [Concomitant]
     Route: 065
  12. AMIODARONE [Concomitant]
     Route: 042
     Dates: start: 20100601

REACTIONS (9)
  - CHEST PAIN [None]
  - HEPARIN-INDUCED THROMBOCYTOPENIA [None]
  - HEPARIN-INDUCED THROMBOCYTOPENIA TEST [None]
  - HEPATIC ENZYME INCREASED [None]
  - MYOCARDIAL INFARCTION [None]
  - PLATELET COUNT ABNORMAL [None]
  - PLATELET COUNT DECREASED [None]
  - TORSADE DE POINTES [None]
  - VENTRICULAR TACHYCARDIA [None]
